FAERS Safety Report 8855676 (Version 1)
Quarter: 2012Q4

REPORT INFORMATION
  Report Type: Spontaneous
  Country: US (occurrence: None)
  Receive Date: 20121019
  Receipt Date: 20121019
  Transmission Date: 20130627
  Serious: No
  Sender: FDA-Public Use
  Company Number: None

PATIENT
  Age: 38 Year
  Sex: Male

DRUGS (2)
  1. TEMODAR [Suspect]
     Indication: MALIGNANT NEOPLASM OF BRAIN
     Dosage: Start Therapy Date ^partially illegible^  (   /13/12)
450mg QHS PO combined x 5 days per cycle
     Route: 048
     Dates: end: 20121017
  2. TEMODAR [Suspect]

REACTIONS (2)
  - Treatment failure [None]
  - Neoplasm progression [None]
